FAERS Safety Report 8326461-3 (Version None)
Quarter: 2012Q2

REPORT INFORMATION
  Report Type: 
  Country: None (occurrence: None)
  Receive Date: 20120501
  Receipt Date: 20110524
  Transmission Date: 20120825
  Serious: No
  Sender: FDA-Public Use
  Company Number: US-SANOFI-AVENTIS-2011SA034964

PATIENT
  Age: 36 Year
  Sex: Female
  Weight: 136.07 kg

DRUGS (3)
  1. LANTUS [Concomitant]
     Dosage: 30-35 UNITS
  2. SOLOSTAR [Suspect]
     Indication: TYPE 2 DIABETES MELLITUS
     Dates: start: 20110301
  3. APIDRA [Suspect]
     Indication: TYPE 2 DIABETES MELLITUS
     Dosage: 20/30/30 THREE TIMES A DAY
     Route: 058
     Dates: start: 20110301

REACTIONS (7)
  - DRUG INEFFECTIVE [None]
  - WEIGHT INCREASED [None]
  - PAIN [None]
  - ARTHRALGIA [None]
  - ABDOMINAL DISTENSION [None]
  - SWELLING [None]
  - BLOOD GLUCOSE DECREASED [None]
